FAERS Safety Report 13406626 (Version 1)
Quarter: 2017Q2

REPORT INFORMATION
  Report Type: Spontaneous
  Country: US (occurrence: US)
  Receive Date: 20170405
  Receipt Date: 20170405
  Transmission Date: 20170830
  Serious: No
  Sender: FDA-Public Use
  Company Number: US-SA-2016SA223631

PATIENT
  Age: 10 Year
  Sex: Female

DRUGS (1)
  1. ALLEGRA [Suspect]
     Active Substance: FEXOFENADINE HYDROCHLORIDE
     Indication: COUGH
     Route: 048

REACTIONS (3)
  - Drug ineffective for unapproved indication [Unknown]
  - Expired product administered [Unknown]
  - Product use in unapproved indication [Unknown]
